FAERS Safety Report 6991483-1 (Version None)
Quarter: 2010Q3

REPORT INFORMATION
  Report Type: 
  Country: None (occurrence: None)
  Receive Date: 20100916
  Receipt Date: 20090826
  Transmission Date: 20110219
  Serious: No
  Sender: FDA-Public Use
  Company Number: US-WYE-H10709509

PATIENT
  Sex: Female

DRUGS (6)
  1. PRISTIQ [Suspect]
     Indication: FATIGUE
     Route: 048
     Dates: start: 20090501, end: 20090818
  2. PRISTIQ [Suspect]
     Indication: ASTHENIA
  3. EXFORGE [Concomitant]
  4. TRICOR [Concomitant]
  5. ACETYLSALICYLIC ACID [Concomitant]
  6. LIPITOR [Concomitant]

REACTIONS (6)
  - CONSTIPATION [None]
  - DRUG WITHDRAWAL SYNDROME [None]
  - MEMORY IMPAIRMENT [None]
  - NERVOUSNESS [None]
  - TINNITUS [None]
  - VISUAL FIELD DEFECT [None]
